FAERS Safety Report 5954793-2 (Version None)
Quarter: 2008Q4

REPORT INFORMATION
  Report Type: 
  Country: None (occurrence: None)
  Receive Date: 20081117
  Receipt Date: 20081105
  Transmission Date: 20090506
  Serious: Yes (Death, Hospitalization)
  Sender: FDA-Public Use
  Company Number: NL-AVENTIS-200816968GDDC

PATIENT
  Age: 85 Year
  Sex: Female

DRUGS (16)
  1. RIFADIN [Suspect]
     Route: 048
     Dates: start: 20070129, end: 20070212
  2. RIFADIN [Suspect]
     Route: 048
     Dates: start: 20070214, end: 20070218
  3. RIFADIN [Suspect]
     Route: 042
     Dates: start: 20070217, end: 20070225
  4. NADROPARINE CALCIUM [Concomitant]
  5. GRANISETRON [Concomitant]
  6. MORPHINE [Concomitant]
  7. FLUCLOXACILLINE [Concomitant]
  8. ACETAMINOPHEN [Concomitant]
  9. SPIRONOLACTONE [Concomitant]
  10. HALOPERIDOL [Concomitant]
  11. CALCIUM CARBONATE [Concomitant]
  12. FERRO SULPHATE [Concomitant]
  13. ATENOLOL [Concomitant]
  14. TEMAZEPAM [Concomitant]
  15. PANTOPRAZOLE SODIUM [Concomitant]
  16. PREDNISOLONE [Concomitant]

REACTIONS (2)
  - BLOOD CREATININE INCREASED [None]
  - RENAL IMPAIRMENT [None]
